FAERS Safety Report 6043311-9 (Version None)
Quarter: 2009Q1

REPORT INFORMATION
  Report Type: 
  Country: None (occurrence: None)
  Receive Date: 20090120
  Receipt Date: 20090114
  Transmission Date: 20090719
  Serious: Yes (Other)
  Sender: FDA-Public Use
  Company Number: US-RANBAXY-2008US-20179

PATIENT

DRUGS (4)
  1. ISOTRETINOIN [Suspect]
     Indication: ACNE
     Dosage: 30 MG, UNK
     Route: 048
     Dates: end: 20081223
  2. ISOTRETINOIN [Suspect]
     Dosage: 40 MG, UNK
     Route: 048
     Dates: end: 20081223
  3. AMNESTEEM [Suspect]
     Indication: DRUG USE FOR UNKNOWN INDICATION
     Dosage: 40 MG, UNK
     Route: 048
  4. AMNESTEEM [Suspect]
     Dosage: 20 MG, UNK
     Route: 048

REACTIONS (2)
  - DEPRESSION [None]
  - SUICIDAL IDEATION [None]
